FAERS Safety Report 7401107-7 (Version None)
Quarter: 2011Q1

REPORT INFORMATION
  Report Type: 
  Country: None (occurrence: None)
  Receive Date: 20110329
  Receipt Date: 20110311
  Transmission Date: 20110831
  Serious: Yes (Hospitalization, Other)
  Sender: FDA-Public Use
  Company Number: 2010EU001518

PATIENT
  Age: 33 Year
  Sex: Female

DRUGS (2)
  1. PREDNISOLONE [Concomitant]
  2. PROTOPIC [Suspect]
     Indication: NEURODERMATITIS
     Dosage: 2 G, OTHER, TOPICAL
     Route: 061
     Dates: start: 20100128

REACTIONS (3)
  - NEURODERMATITIS [None]
  - CONDITION AGGRAVATED [None]
  - OFF LABEL USE [None]
